FAERS Safety Report 11512222 (Version 1)
Quarter: 2015Q3

REPORT INFORMATION
  Report Type: Spontaneous
  Country: US (occurrence: US)
  Receive Date: 20150916
  Receipt Date: 20150916
  Transmission Date: 20151125
  Serious: No
  Sender: FDA-Public Use
  Company Number: US-LUPIN PHARMACEUTICALS INC.-E2B_00002721

PATIENT
  Age: 61 Year
  Sex: Female

DRUGS (1)
  1. CEPHALEXIN. [Suspect]
     Active Substance: CEPHALEXIN
     Indication: PROPHYLAXIS

REACTIONS (2)
  - Product odour abnormal [Unknown]
  - Breath odour [Recovered/Resolved]

NARRATIVE: CASE EVENT DATE: 201410
